FAERS Safety Report 15877480 (Version 1)
Quarter: 2019Q1

REPORT INFORMATION
  Report Type: Spontaneous
  Country: FR (occurrence: FR)
  Receive Date: 20190128
  Receipt Date: 20190128
  Transmission Date: 20190417
  Serious: Yes (Other)
  Sender: FDA-Public Use
  Company Number: FR-TEVA-2019-FR-1003561

PATIENT
  Age: 78 Year
  Sex: Male

DRUGS (2)
  1. OFLOXACIN. [Suspect]
     Active Substance: OFLOXACIN
     Indication: OSTEITIS
     Dosage: 150 MILLIGRAM DAILY;
     Route: 048
     Dates: start: 20181130, end: 20181203
  2. OFLOXACIN. [Suspect]
     Active Substance: OFLOXACIN
     Route: 065

REACTIONS (3)
  - Abnormal behaviour [Recovered/Resolved]
  - Persecutory delusion [Recovered/Resolved]
  - Aggression [Recovered/Resolved]

NARRATIVE: CASE EVENT DATE: 201812
